FAERS Safety Report 20654947 (Version 6)
Quarter: 2023Q2

REPORT INFORMATION
  Report Type: Spontaneous
  Country: US (occurrence: US)
  Receive Date: 20220330
  Receipt Date: 20230515
  Transmission Date: 20230721
  Serious: No
  Sender: FDA-Public Use
  Company Number: US-CYCLE PHARMACEUTICALS LTD-2022-CYC-000005

PATIENT

DRUGS (4)
  1. NITYR [Suspect]
     Active Substance: NITISINONE
     Indication: Tyrosinaemia
     Dosage: 1 TABLET IN THE MORNING
     Route: 065
     Dates: end: 202202
  2. NITYR [Suspect]
     Active Substance: NITISINONE
     Dosage: 1 TABLET IN THE MORNING
     Route: 065
     Dates: start: 20220409
  3. NITYR [Suspect]
     Active Substance: NITISINONE
     Indication: Tyrosinaemia
     Dosage: 1 TABLET IN THE MORNING AND 2 TABLEST IN THE EVENING
     Route: 065
     Dates: end: 202202
  4. NITYR [Suspect]
     Active Substance: NITISINONE
     Dosage: 1 TABLET IN THE MORNING AND 2 TABLEST IN THE EVENING
     Route: 065
     Dates: start: 20220409

REACTIONS (2)
  - Therapy interrupted [Recovered/Resolved]
  - Maternal exposure during pregnancy [Not Recovered/Not Resolved]

NARRATIVE: CASE EVENT DATE: 20220201
